FAERS Safety Report 5280069-5 (Version None)
Quarter: 2007Q1

REPORT INFORMATION
  Report Type: 
  Country: None (occurrence: None)
  Receive Date: 20061229
  Receipt Date: 20061020
  Transmission Date: 20070707
  Serious: Yes (Other)
  Sender: FDA-Public Use
  Company Number: 2006UW20324

PATIENT
  Age: 76 Year
  Sex: Female
  Weight: 95.254 kg

DRUGS (5)
  1. CRESTOR [Suspect]
     Indication: BLOOD CHOLESTEROL INCREASED
     Dosage: 10 MG DAILY PO
     Route: 048
     Dates: start: 20060813
  2. LORATADINE [Concomitant]
  3. ASPIRIN [Concomitant]
  4. TYLENOL [Concomitant]
  5. FOLIC ACID [Concomitant]

REACTIONS (1)
  - SOMNOLENCE [None]
